FAERS Safety Report 17763255 (Version 14)
Quarter: 2021Q3

REPORT INFORMATION
  Report Type: Report from Study
  Country: None (occurrence: BE)
  Receive Date: 20200508
  Receipt Date: 20210826
  Transmission Date: 20211014
  Serious: Yes (Hospitalization, Other)
  Sender: FDA-Public Use
  Company Number: BE-ABBVIE-20K-013-3394776-00

PATIENT
  Age: 80 Year
  Sex: Male

DRUGS (18)
  1. DUODOPA [Suspect]
     Active Substance: CARBIDOPA\LEVODOPA
     Dosage: MD= 6.5ML, CD= 4.4ML/HR DURING 16HRS, ED= 2ML?DOSE INCREASED
     Route: 050
     Dates: start: 20200505, end: 20200515
  2. DUODOPA [Suspect]
     Active Substance: CARBIDOPA\LEVODOPA
     Dosage: MD= 4.0 ML, CD= 5.2 ML/HR DURING 16HRS, ED= 2.0 ML, ND= 5.2 ML/HR DURING 8HRS.
     Route: 050
     Dates: start: 20201105, end: 20201118
  3. DUODOPA [Suspect]
     Active Substance: CARBIDOPA\LEVODOPA
     Dosage: MD= 4.0 ML, CD= 6.0 ML/HR DURING 16HRS, ED= 3.5 ML, ND= 6.0 ML/HR DURING 8HRS
     Route: 050
     Dates: start: 20210204, end: 20210402
  4. DUODOPA [Suspect]
     Active Substance: CARBIDOPA\LEVODOPA
     Dosage: MD= 7.0 ML, CD= 4.6 ML/HR DURING 16HRS, ED= 2.0 ML
     Route: 050
     Dates: start: 20200605, end: 20201023
  5. SINEMET [Concomitant]
     Active Substance: CARBIDOPA\LEVODOPA
     Dosage: FORM STRENGTH: 50MG/200MG
     Route: 048
  6. DUODOPA [Suspect]
     Active Substance: CARBIDOPA\LEVODOPA
     Dosage: MD= 7ML, CD= 4.4ML/HR DURING 16HRS, ED= 2ML
     Route: 050
     Dates: start: 20200515, end: 20200605
  7. DUODOPA [Suspect]
     Active Substance: CARBIDOPA\LEVODOPA
     Dosage: MD= 4.0 ML, CD= 5.8 ML/HR DURING 16HRS, ED= 3.5 ML, ND= 5.8 ML/HR DURING 8HRS
     Route: 050
     Dates: start: 20201223, end: 20210204
  8. SINEMET [Concomitant]
     Active Substance: CARBIDOPA\LEVODOPA
     Dosage: FORM STRENGTH: 25MG/250MG; UNIT DOSE: 0.5 DOSE?BETWEEN 2 AND 4 PM, NOT SYSTEMATIC
     Route: 048
  9. XADAGO [Concomitant]
     Active Substance: SAFINAMIDE MESYLATE
     Indication: PARKINSON^S DISEASE
     Route: 048
  10. DUODOPA [Suspect]
     Active Substance: CARBIDOPA\LEVODOPA
     Dosage: MD= 4.0 ML, CD= 5.0 ML/HR DURING 16HRS, ED= 2.0 ML, ND= 5.0 ML/HR DURING 8HRS
     Route: 050
     Dates: start: 20201030, end: 20201105
  11. DUODOPA [Suspect]
     Active Substance: CARBIDOPA\LEVODOPA
     Indication: PARKINSON^S DISEASE
     Dosage: MD= 6ML, CD= 3.6ML/HR DURING 16HRS, ED= 1.5ML.
     Route: 050
     Dates: start: 20200429, end: 20200505
  12. DUODOPA [Suspect]
     Active Substance: CARBIDOPA\LEVODOPA
     Dosage: MD= 4.0 ML, CD= 4.8 ML/HR DURING 16HRS, ED= 2.0 ML, ND= 4.8 ML/HR DURING 8HRS
     Route: 050
     Dates: start: 20201026, end: 20201030
  13. DUODOPA [Suspect]
     Active Substance: CARBIDOPA\LEVODOPA
     Dosage: MD= 4.0 ML, CD= 5.4 ML/HR DURING 16HRS, ED= 2.0 ML, ND= 5.4 ML/HR DURING 8HRS
     Route: 050
     Dates: start: 20201118, end: 20201211
  14. DUODOPA [Suspect]
     Active Substance: CARBIDOPA\LEVODOPA
     Dosage: MD= 4.0 ML, CD= 4.6 ML/HR DURING 16HRS, ED= 2.0 ML, ND= 4.6 ML/HR DURING 8HRS
     Route: 050
     Dates: start: 20201023, end: 20201026
  15. DUODOPA [Suspect]
     Active Substance: CARBIDOPA\LEVODOPA
     Dosage: MD= 4.0 ML, CD= 6.0 ML/HR DURING 16HRS, ED= 3.5 ML, ND= 6.0 ML/?HR DURING 8HRS
     Route: 050
     Dates: start: 20201211, end: 202012
  16. DUODOPA [Suspect]
     Active Substance: CARBIDOPA\LEVODOPA
     Dosage: MD= 4.0 ML, CD= 6.0 ML/HR DURING 16HRS, ED= 3.5 ML, ND= 6.0 ML/HR DURING 8HRS
     Route: 050
     Dates: start: 20201223, end: 20201223
  17. DUODOPA [Suspect]
     Active Substance: CARBIDOPA\LEVODOPA
     Dosage: MD 4.0 ML, CD 6.0 ML/HR, ED 3.5 ML, ND 6.0 ML/HR DURING 24HRS
     Route: 050
     Dates: start: 20210402
  18. SINEMET [Concomitant]
     Active Substance: CARBIDOPA\LEVODOPA
     Indication: PRODUCT USED FOR UNKNOWN INDICATION
     Dosage: FORM STRENGTH: 25MG/250MG, UNIT DOSE: 1 TABLET AT 6H30, 10H30, 14H30, 18H30.
     Route: 048

REACTIONS (33)
  - Stoma site infection [Unknown]
  - Head discomfort [Unknown]
  - Wound infection staphylococcal [Unknown]
  - Staphylococcal infection [Unknown]
  - Balance disorder [Not Recovered/Not Resolved]
  - Fall [Recovered/Resolved]
  - Freezing phenomenon [Recovering/Resolving]
  - Disorientation [Unknown]
  - Dyskinesia [Unknown]
  - Unevaluable event [Unknown]
  - Sepsis [Unknown]
  - Decreased interest [Recovering/Resolving]
  - Stoma site odour [Unknown]
  - Bradykinesia [Unknown]
  - Cognitive disorder [Unknown]
  - General physical health deterioration [Not Recovered/Not Resolved]
  - Stoma site erythema [Not Recovered/Not Resolved]
  - Stoma site discharge [Not Recovered/Not Resolved]
  - Mobility decreased [Recovering/Resolving]
  - Feeling abnormal [Unknown]
  - Hypotension [Unknown]
  - C-reactive protein increased [Unknown]
  - Nocturia [Recovering/Resolving]
  - Muscle rigidity [Not Recovered/Not Resolved]
  - Depression [Recovering/Resolving]
  - Device occlusion [Recovered/Resolved]
  - Apathy [Unknown]
  - Restless legs syndrome [Recovering/Resolving]
  - Tremor [Unknown]
  - Gait disturbance [Not Recovered/Not Resolved]
  - Underdose [Recovering/Resolving]
  - Aggression [Recovering/Resolving]
  - Drug ineffective [Not Recovered/Not Resolved]

NARRATIVE: CASE EVENT DATE: 2020
